FAERS Safety Report 6377944-7 (Version None)
Quarter: 2009Q3

REPORT INFORMATION
  Report Type: 
  Country: None (occurrence: None)
  Receive Date: 20090925
  Receipt Date: 20090916
  Transmission Date: 20100115
  Serious: Yes (Hospitalization, Other)
  Sender: FDA-Public Use
  Company Number: PHHY2009DE40420

PATIENT
  Age: 78 Year
  Sex: Female

DRUGS (7)
  1. RASILEZ HCT [Suspect]
     Indication: HYPERTENSION
     Dosage: 1 DF/DAY
     Route: 048
     Dates: start: 20090801
  2. SIMVASTATIN [Concomitant]
     Dosage: UNK
     Route: 048
     Dates: start: 20090801
  3. ENALAPRIL MALEATE [Concomitant]
     Indication: HYPERTENSION
     Dosage: UNK
  4. AMLODIPINE [Concomitant]
     Indication: HYPERTENSION
     Dosage: UNK
     Route: 048
  5. BISOPROLOL FUMARATE [Concomitant]
     Indication: HYPERTENSION
     Dosage: UNK
  6. HYDROCHLOROTHIAZIDE [Concomitant]
     Indication: HYPERTENSION
     Dosage: UNK
     Route: 048
  7. HYDROCHLOROTHIAZIDE [Concomitant]
     Indication: OEDEMA

REACTIONS (7)
  - BLOOD PRESSURE INCREASED [None]
  - DEHYDRATION [None]
  - HYPERLIPIDAEMIA [None]
  - HYPOKALAEMIA [None]
  - HYPONATRAEMIA [None]
  - HYPOTENSION [None]
  - LOSS OF CONSCIOUSNESS [None]
